FAERS Safety Report 4462656-7 (Version None)
Quarter: 2004Q3

REPORT INFORMATION
  Report Type: 
  Country: None (occurrence: None)
  Receive Date: 20040929
  Receipt Date: 20040914
  Transmission Date: 20050211
  Serious: Yes (Hospitalization)
  Sender: FDA-Public Use
  Company Number: 2004UW19373

PATIENT
  Age: 72 Year
  Sex: Female

DRUGS (15)
  1. IRESSA [Suspect]
     Indication: BLADDER CANCER
     Dosage: 250 MG DAILY PO
     Route: 048
     Dates: start: 20040804, end: 20040815
  2. TAXOTERE [Suspect]
     Indication: BLADDER CANCER
     Dosage: 250 MG/M2 45MG  WEEKLY TIMES FOUR
     Dates: start: 20040804
  3. LOTREL [Concomitant]
  4. LIPITOR [Concomitant]
  5. IMDUR [Concomitant]
  6. COUMADIN [Concomitant]
  7. MAGNESIUM OXIDE [Concomitant]
  8. OXYBUTYNIN [Concomitant]
  9. IRON [Concomitant]
  10. IMODIUM [Concomitant]
  11. AMBIEN [Concomitant]
  12. MULTI-VITAMINS [Concomitant]
  13. VITAMINS C [Concomitant]
  14. ANTIVERT [Concomitant]
  15. SYNTHROID [Concomitant]

REACTIONS (3)
  - DEHYDRATION [None]
  - DIARRHOEA [None]
  - RENAL FAILURE [None]
